FAERS Safety Report 16320883 (Version 8)
Quarter: 2019Q4

REPORT INFORMATION
  Report Type: Spontaneous
  Country: FI (occurrence: FI)
  Receive Date: 20190516
  Receipt Date: 20191207
  Transmission Date: 20200122
  Serious: Yes (Disabling, Other)
  Sender: FDA-Public Use
  Company Number: FI-AMGEN-FINSP2019041959

PATIENT
  Age: 67 Year
  Sex: Female

DRUGS (2)
  1. AIMOVIG [Suspect]
     Active Substance: ERENUMAB-AOOE
     Indication: MIGRAINE PROPHYLAXIS
     Dosage: 140 MILLIGRAM (70 MG TO RIGHT THIGH AND 70 MG TO LEFT THIGH)
     Route: 058
     Dates: start: 20181207, end: 20181207
  2. THYROXIN [Concomitant]
     Active Substance: LEVOTHYROXINE
     Indication: HYPOTHYROIDISM
     Dosage: UNK
     Route: 065

REACTIONS (45)
  - Abdominal pain upper [Recovered/Resolved]
  - Myalgia [Not Recovered/Not Resolved]
  - Weight increased [Recovering/Resolving]
  - Nerve injury [Not Recovered/Not Resolved]
  - Vision blurred [Unknown]
  - Thyroid disorder [Unknown]
  - Injection site reaction [Unknown]
  - Fatigue [Unknown]
  - Constipation [Recovered/Resolved]
  - Rheumatic disorder [Unknown]
  - General physical health deterioration [Not Recovered/Not Resolved]
  - Contusion [Unknown]
  - Paralysis [Unknown]
  - Hypoaesthesia [Unknown]
  - Pain [Unknown]
  - Papule [Recovered/Resolved]
  - Eye pain [Not Recovered/Not Resolved]
  - Eye disorder [Not Recovered/Not Resolved]
  - Migraine without aura [Unknown]
  - Pruritus [Recovered/Resolved]
  - Dizziness [Recovering/Resolving]
  - Injection site pain [Not Recovered/Not Resolved]
  - Swelling [Unknown]
  - Pain in extremity [Not Recovered/Not Resolved]
  - Dyskinesia [Not Recovered/Not Resolved]
  - Migraine [Unknown]
  - Gait disturbance [Unknown]
  - Asthenia [Not Recovered/Not Resolved]
  - Arthralgia [Unknown]
  - Nausea [Unknown]
  - Injection site swelling [Recovered/Resolved]
  - Petit mal epilepsy [Unknown]
  - Back pain [Unknown]
  - Insomnia [Not Recovered/Not Resolved]
  - Fall [Unknown]
  - Muscle twitching [Unknown]
  - Tremor [Recovering/Resolving]
  - Dry eye [Not Recovered/Not Resolved]
  - Memory impairment [Not Recovered/Not Resolved]
  - Facial neuralgia [Not Recovered/Not Resolved]
  - Hypertension [Unknown]
  - Neuralgia [Unknown]
  - Visual impairment [Not Recovered/Not Resolved]
  - Alopecia [Unknown]
  - Heart rate increased [Unknown]

NARRATIVE: CASE EVENT DATE: 20181208
